FAERS Safety Report 15744111 (Version 1)
Quarter: 2018Q4

REPORT INFORMATION
  Report Type: Spontaneous
  Country: US (occurrence: US)
  Receive Date: 20181205
  Receipt Date: 20181205
  Transmission Date: 20190205
  Serious: No
  Sender: FDA-Public Use
  Company Number: None

PATIENT
  Age: 15 Year
  Sex: Male

DRUGS (1)
  1. VINCRISTINE INJ 1MG/ML [Suspect]
     Active Substance: VINCRISTINE
     Indication: EWING^S SARCOMA
     Dates: start: 20181203

REACTIONS (1)
  - Off label use [None]

NARRATIVE: CASE EVENT DATE: 20181203
